FAERS Safety Report 24277827 (Version 1)
Quarter: 2024Q3

REPORT INFORMATION
  Report Type: Spontaneous
  Country: CN (occurrence: CN)
  Receive Date: 20240903
  Receipt Date: 20240903
  Transmission Date: 20241017
  Serious: Yes (Life-Threatening)
  Sender: BAYER
  Company Number: CN-BAYER-2024A123995

PATIENT
  Age: 61 Year
  Sex: Female
  Weight: 71 kg

DRUGS (1)
  1. ULTRAVIST [Suspect]
     Active Substance: IOPROMIDE
     Indication: Computerised tomogram abdomen
     Dosage: 76 ML, ONCE, HIGH PRESSURE INJECTION
     Route: 040
     Dates: start: 20240822, end: 20240822

REACTIONS (23)
  - Anaphylactic shock [Recovering/Resolving]
  - Blood pressure immeasurable [Recovered/Resolved]
  - Blood pressure decreased [Recovered/Resolved]
  - Sneezing [Recovering/Resolving]
  - Discomfort [Recovering/Resolving]
  - Pallor [Recovering/Resolving]
  - Somnolence [Recovering/Resolving]
  - Pulse abnormal [Recovering/Resolving]
  - Respiratory rate increased [Recovering/Resolving]
  - Palpitations [Recovering/Resolving]
  - Chest discomfort [Recovering/Resolving]
  - Chest pain [Recovering/Resolving]
  - Nausea [Recovering/Resolving]
  - Oropharyngeal pain [Recovering/Resolving]
  - PO2 decreased [None]
  - Blood lactic acid increased [None]
  - Oxygen combining power decreased [None]
  - Blood potassium decreased [None]
  - Vomiting [Recovering/Resolving]
  - Blood pressure systolic increased [Recovered/Resolved]
  - Heart rate increased [Recovered/Resolved]
  - Sensation of foreign body [Recovered/Resolved]
  - Dizziness [Recovering/Resolving]

NARRATIVE: CASE EVENT DATE: 20240822
